FAERS Safety Report 9968163 (Version 1)
Quarter: 2014Q1

REPORT INFORMATION
  Report Type: Report from Study
  Country: US (occurrence: US)
  Receive Date: 20140306
  Receipt Date: 20140306
  Transmission Date: 20141002
  Serious: No
  Sender: FDA-Public Use
  Company Number: US-ABBVIE-13P-163-1146406-00

PATIENT
  Age: 35 Year
  Sex: Female

DRUGS (7)
  1. HUMIRA [Suspect]
     Indication: PSORIASIS
     Dates: end: 201008
  2. CYMBALTA [Concomitant]
     Indication: DEPRESSION
     Dosage: 60 MG DAILY
  3. BUSPIRONE [Concomitant]
     Indication: ANXIETY
     Dosage: 15 MG DAILY
  4. SYNTHROID [Concomitant]
     Indication: HYPOTHYROIDISM
     Dosage: .112 MG DAILY
  5. ABILIFY [Concomitant]
     Indication: DEPRESSION
     Dosage: 5 MG DAILY
  6. ATENOLOL [Concomitant]
     Indication: HYPERTENSION
     Dosage: 25 MG DAILY
  7. NIFEDIPINE [Concomitant]
     Indication: HYPERTENSION
     Dosage: 60 MG DAILY

REACTIONS (3)
  - Depression [Not Recovered/Not Resolved]
  - Hypertension [Recovered/Resolved]
  - Psoriasis [Unknown]
